FAERS Safety Report 4812802-8 (Version None)
Quarter: 2005Q4

REPORT INFORMATION
  Report Type: 
  Country: None (occurrence: None)
  Receive Date: 20051028
  Receipt Date: 20041119
  Transmission Date: 20060501
  Serious: No
  Sender: FDA-Public Use
  Company Number: US-GLAXOSMITHKLINE-A0534641A

PATIENT
  Age: 68 Year
  Sex: Female

DRUGS (9)
  1. ADVAIR DISKUS 100/50 [Suspect]
     Indication: ASTHMA
     Dosage: 1PUFF PER DAY
     Route: 055
     Dates: start: 20041115, end: 20041117
  2. SINGULAIR [Concomitant]
  3. NEXIUM [Concomitant]
  4. ZYRTEC [Concomitant]
  5. ALTACE [Concomitant]
  6. LASIX [Concomitant]
  7. MAXZIDE [Concomitant]
  8. ADVICOR [Concomitant]
  9. TRICOR [Concomitant]

REACTIONS (2)
  - BLOOD GLUCOSE INCREASED [None]
  - RASH [None]
